FAERS Safety Report 17829631 (Version 1)
Quarter: 2020Q2

REPORT INFORMATION
  Report Type: Spontaneous
  Country: US (occurrence: US)
  Receive Date: 20200527
  Receipt Date: 20200527
  Transmission Date: 20200714
  Serious: Yes (Hospitalization)
  Sender: FDA-Public Use
  Company Number: None

PATIENT
  Age: 11 Year
  Sex: Female

DRUGS (2)
  1. PERTYZE 16,000 [Concomitant]
     Dates: start: 20150706
  2. PULMOZYME [Suspect]
     Active Substance: DORNASE ALFA
     Route: 048
     Dates: start: 20150705

REACTIONS (1)
  - Hospitalisation [None]

NARRATIVE: CASE EVENT DATE: 20200501
